FAERS Safety Report 11788782 (Version 1)
Quarter: 2015Q4

REPORT INFORMATION
  Report Type: Spontaneous
  Country: US (occurrence: None)
  Receive Date: 20151130
  Receipt Date: 20151130
  Transmission Date: 20160305
  Serious: No
  Sender: FDA-Public Use
  Company Number: None

PATIENT
  Age: 34 Year
  Sex: Female
  Weight: 48.99 kg

DRUGS (2)
  1. RIZATRIPTAN 10MG [Suspect]
     Active Substance: RIZATRIPTAN
     Indication: MIGRAINE
     Route: 048
  2. ALIVE FRUIT MULTIVITAMIN GUMMY [Concomitant]

REACTIONS (1)
  - Palpitations [None]

NARRATIVE: CASE EVENT DATE: 20151125
